FAERS Safety Report 18442446 (Version 1)
Quarter: 2020Q4

REPORT INFORMATION
  Report Type: Spontaneous
  Country: US (occurrence: US)
  Receive Date: 20201029
  Receipt Date: 20201029
  Transmission Date: 20210114
  Serious: Yes (Other)
  Sender: FDA-Public Use
  Company Number: US-SA-2020SA300185

PATIENT

DRUGS (1)
  1. ALLEGRA ALLERGY [Suspect]
     Active Substance: FEXOFENADINE HYDROCHLORIDE
     Indication: HYPERSENSITIVITY
     Dosage: 1 DF, QD
     Route: 065
     Dates: start: 20201018, end: 20201022

REACTIONS (6)
  - Pollakiuria [Unknown]
  - Rectal haemorrhage [Unknown]
  - Neuralgia [Unknown]
  - Insomnia [Unknown]
  - Arthralgia [Unknown]
  - Haemorrhoids [Unknown]
